FAERS Safety Report 6052099-7 (Version None)
Quarter: 2009Q1

REPORT INFORMATION
  Report Type: 
  Country: None (occurrence: None)
  Receive Date: 20090126
  Receipt Date: 20090119
  Transmission Date: 20090719
  Serious: Yes (Hospitalization)
  Sender: FDA-Public Use
  Company Number: DE-ABBOTT-09P-062-0498234-00

PATIENT
  Sex: Male

DRUGS (1)
  1. HUMIRA [Suspect]
     Indication: EAR INFECTION
     Route: 058
     Dates: start: 20041201

REACTIONS (2)
  - HYPERTENSION [None]
  - OTITIS MEDIA [None]
